FAERS Safety Report 8836249 (Version 3)
Quarter: 2013Q2

REPORT INFORMATION
  Report Type: Spontaneous
  Country: US (occurrence: US)
  Receive Date: 20121011
  Receipt Date: 20130403
  Transmission Date: 20140414
  Serious: No
  Sender: FDA-Public Use
  Company Number: US-ASTRAZENECA-2012SE27034

PATIENT
  Age: 87 Year
  Sex: Female
  Weight: 65.3 kg

DRUGS (2)
  1. NEXIUM [Suspect]
     Indication: HIATUS HERNIA
     Route: 048
  2. PRILOSEC [Suspect]
     Route: 048

REACTIONS (6)
  - Ligament rupture [Unknown]
  - Gait disturbance [Unknown]
  - Nerve compression [Unknown]
  - Musculoskeletal pain [Unknown]
  - Muscular weakness [Unknown]
  - Drug ineffective [Unknown]
